FAERS Safety Report 20159909 (Version 1)
Quarter: 2021Q4

REPORT INFORMATION
  Report Type: Spontaneous
  Country: IT (occurrence: IT)
  Receive Date: 20211208
  Receipt Date: 20211208
  Transmission Date: 20220303
  Serious: Yes (Hospitalization, Other)
  Sender: FDA-Public Use
  Company Number: IT-NOVARTISPH-NVSC2021IT279676

PATIENT
  Age: 73 Year
  Sex: Female

DRUGS (5)
  1. AZITHROMYCIN DIHYDRATE [Interacting]
     Active Substance: AZITHROMYCIN DIHYDRATE
     Indication: COVID-19
     Dosage: 500 MG, QD
     Route: 065
  2. CEFTRIAXONE [Suspect]
     Active Substance: CEFTRIAXONE
     Indication: COVID-19
     Dosage: 2 G, QD (DAILY)
     Route: 042
  3. ENOXAPARIN [Suspect]
     Active Substance: ENOXAPARIN
     Indication: COVID-19
     Dosage: 4000 UI, QD
     Route: 065
  4. HYDROXYCHLOROQUINE [Interacting]
     Active Substance: HYDROXYCHLOROQUINE
     Indication: COVID-19
     Dosage: 400 MG, QD
     Route: 065
  5. DEXAMETHASONE [Suspect]
     Active Substance: DEXAMETHASONE
     Indication: Respiratory failure
     Dosage: UNK
     Route: 065

REACTIONS (4)
  - Acute generalised exanthematous pustulosis [Recovered/Resolved]
  - Drug interaction [Unknown]
  - Product use issue [Unknown]
  - Product use in unapproved indication [Unknown]
